FAERS Safety Report 25368203 (Version 1)
Quarter: 2025Q2

REPORT INFORMATION
  Report Type: Spontaneous
  Country: US (occurrence: None)
  Receive Date: 20250527
  Receipt Date: 20250527
  Transmission Date: 20250717
  Serious: Yes (Life-Threatening, Disabling, Other)
  Sender: FDA-CTU
  Company Number: None

PATIENT

DRUGS (1)
  1. LEXAPRO [Suspect]
     Active Substance: ESCITALOPRAM OXALATE

REACTIONS (13)
  - Withdrawal syndrome [None]
  - Decreased activity [None]
  - Quality of life decreased [None]
  - Akathisia [None]
  - Fatigue [None]
  - Tinnitus [None]
  - Anhedonia [None]
  - Depression [None]
  - Suicidal ideation [None]
  - Brain fog [None]
  - Skin burning sensation [None]
  - Exposure during pregnancy [None]
  - Abortion induced [None]

NARRATIVE: CASE EVENT DATE: 20210201
